FAERS Safety Report 10563630 (Version 4)
Quarter: 2014Q4

REPORT INFORMATION
  Report Type: Spontaneous
  Country: DK (occurrence: DK)
  Receive Date: 20141104
  Receipt Date: 20141204
  Transmission Date: 20150529
  Serious: Yes (Hospitalization)
  Sender: FDA-Public Use
  Company Number: DK-PFIZER INC-2014302757

PATIENT
  Age: 71 Year
  Sex: Male

DRUGS (4)
  1. SIMVASTATIN. [Suspect]
     Active Substance: SIMVASTATIN
     Indication: TYPE 2 DIABETES MELLITUS
     Dosage: 80 MG, DAILY
     Route: 065
  2. SIMVASTATIN. [Interacting]
     Active Substance: SIMVASTATIN
     Indication: BLOOD CHOLESTEROL DECREASED
  3. ROXITHROMYCIN [Interacting]
     Active Substance: ROXITHROMYCIN
     Indication: INFECTION
     Dosage: 300 MG, DAILY
  4. AMLODIPIN [Interacting]
     Active Substance: AMLODIPINE BESYLATE
     Indication: HYPERTENSION
     Dosage: 10 MG, DAILY
     Route: 065

REACTIONS (5)
  - Drug interaction [Recovering/Resolving]
  - Rhabdomyolysis [Recovering/Resolving]
  - Weight decreased [Unknown]
  - Abasia [Recovered/Resolved]
  - Myopathy [Recovering/Resolving]
